FAERS Safety Report 13616329 (Version 1)
Quarter: 2017Q2

REPORT INFORMATION
  Report Type: Spontaneous
  Country: US (occurrence: US)
  Receive Date: 20170606
  Receipt Date: 20170606
  Transmission Date: 20170830
  Serious: Yes (Disabling)
  Sender: FDA-Public Use
  Company Number: None

PATIENT
  Age: 73 Year
  Sex: Male
  Weight: 59.02 kg

DRUGS (11)
  1. WELCHOL [Concomitant]
     Active Substance: COLESEVELAM HYDROCHLORIDE
  2. PROBIOTIC [Concomitant]
     Active Substance: PROBIOTICS NOS
  3. PROLIA [Suspect]
     Active Substance: DENOSUMAB
     Indication: BONE DENSITY ABNORMAL
     Dates: start: 20170524
  4. RANITIDINE. [Concomitant]
     Active Substance: RANITIDINE
  5. DILAUDID [Concomitant]
     Active Substance: HYDROMORPHONE HYDROCHLORIDE
  6. LORAZA [Concomitant]
  7. CALTRATE [Concomitant]
     Active Substance: CALCIUM CARBONATE
  8. EVISTIA [Concomitant]
  9. ONE-A-DAY NOS [Concomitant]
     Active Substance: MINERALS\VITAMINS
  10. CHOLES OFF [Concomitant]
  11. ARTHROTEC [Concomitant]
     Active Substance: DICLOFENAC SODIUM\MISOPROSTOL

REACTIONS (9)
  - Swollen tongue [None]
  - Blood pressure decreased [None]
  - Peripheral swelling [None]
  - Pain in extremity [None]
  - Musculoskeletal pain [None]
  - Neck pain [None]
  - Arthralgia [None]
  - Joint range of motion decreased [None]
  - Nausea [None]
